FAERS Safety Report 9478424 (Version 2)
Quarter: 2013Q3

REPORT INFORMATION
  Report Type: Spontaneous
  Country: IT (occurrence: None)
  Receive Date: 20130822
  Receipt Date: 20130911
  Transmission Date: 20140515
  Serious: Yes (Hospitalization)
  Sender: FDA-Public Use
  Company Number: GER/ITL/13/0034106

PATIENT
  Age: 71 Year
  Sex: Female

DRUGS (3)
  1. CLOPIDOGREL [Suspect]
     Indication: CEREBROVASCULAR ACCIDENT PROPHYLAXIS
     Route: 048
     Dates: start: 20090101
  2. RAMIPRIL (RAMIPRIL) [Concomitant]
  3. ATENOLOL (ATENOLOL) [Concomitant]

REACTIONS (8)
  - Road traffic accident [None]
  - Traumatic intracranial haemorrhage [None]
  - Rib fracture [None]
  - Sternal fracture [None]
  - Head injury [None]
  - Multiple injuries [None]
  - Pleural effusion [None]
  - Subarachnoid haemorrhage [None]
